FAERS Safety Report 7782777-0 (Version None)
Quarter: 2011Q3

REPORT INFORMATION
  Report Type: 
  Country: None (occurrence: None)
  Receive Date: 20110928
  Receipt Date: 20110921
  Transmission Date: 20111222
  Serious: Yes (Other)
  Sender: FDA-Public Use
  Company Number: FR-PFIZER INC-2011131153

PATIENT
  Age: 48 Year
  Sex: Male
  Weight: 83 kg

DRUGS (4)
  1. NEXIUM [Concomitant]
     Indication: GASTRITIS
     Dosage: 40 MG, 1X/DAY
     Route: 048
     Dates: start: 20090401
  2. VIAGRA [Suspect]
     Indication: ERECTILE DYSFUNCTION
     Dosage: 1 DF, SINGLE
  3. CIALIS [Suspect]
     Dosage: UNK
  4. ANAFRANIL [Concomitant]
     Indication: FIBROMYALGIA
     Dosage: 75 MG, 1X/DAY
     Route: 048
     Dates: start: 20090401

REACTIONS (2)
  - ABDOMINAL PAIN [None]
  - HEREDITARY ANGIOEDEMA [None]
